FAERS Safety Report 6463659-3 (Version None)
Quarter: 2009Q4

REPORT INFORMATION
  Report Type: 
  Country: None (occurrence: None)
  Receive Date: 20091201
  Receipt Date: 20091120
  Transmission Date: 20100525
  Serious: Yes (Hospitalization)
  Sender: FDA-Public Use
  Company Number: US-JNJFOC-20091106845

PATIENT
  Sex: Male
  Weight: 139.71 kg

DRUGS (3)
  1. REMICADE [Suspect]
     Dosage: DOSE: 7 VIALS
     Route: 042
     Dates: start: 20090201, end: 20091105
  2. REMICADE [Suspect]
     Dosage: DOSE: 7 VIALS
     Route: 042
     Dates: start: 20090201, end: 20091105
  3. REMICADE [Suspect]
     Indication: CROHN'S DISEASE
     Dosage: DOSE: 7 VIALS
     Route: 042
     Dates: start: 20090201, end: 20091105

REACTIONS (4)
  - INFLUENZA LIKE ILLNESS [None]
  - LYMPHOMA [None]
  - NASOPHARYNGITIS [None]
  - PNEUMONIA [None]
